FAERS Safety Report 6048702-8 (Version None)
Quarter: 2009Q1

REPORT INFORMATION
  Report Type: 
  Country: None (occurrence: None)
  Receive Date: 20090123
  Receipt Date: 20090112
  Transmission Date: 20090719
  Serious: Yes (Other)
  Sender: FDA-Public Use
  Company Number: US-ROCHE-607651

PATIENT
  Sex: Female
  Weight: 81.2 kg

DRUGS (1)
  1. CAPECITABINE [Suspect]
     Route: 065

REACTIONS (1)
  - METASTASES TO LIVER [None]
